FAERS Safety Report 8354693 (Version 2)
Quarter: 2012Q4

REPORT INFORMATION
  Report Type: Report from Study
  Country: CA (occurrence: CA)
  Receive Date: 20120125
  Receipt Date: 20121205
  Transmission Date: 20130627
  Serious: Yes (Other)
  Sender: FDA-Public Use
  Company Number: CA-JNJFOC-20120109269

PATIENT
  Age: 58 Year
  Sex: Male

DRUGS (6)
  1. STELARA [Suspect]
     Indication: PSORIASIS
     Route: 058
     Dates: start: 201101
  2. ASPIRIN [Concomitant]
     Route: 048
  3. AVALIDE [Concomitant]
  4. ATENOLOL [Concomitant]
  5. CRESTOR [Concomitant]
  6. TIAZAC [Concomitant]

REACTIONS (1)
  - Cellulitis [Recovered/Resolved]
